FAERS Safety Report 5406818-0 (Version None)
Quarter: 2007Q3

REPORT INFORMATION
  Report Type: 
  Country: None (occurrence: None)
  Receive Date: 20070807
  Receipt Date: 20070730
  Transmission Date: 20080115
  Serious: Yes (Hospitalization, Disabling, Other)
  Sender: FDA-Public Use
  Company Number: US-ELI_LILLY_AND_COMPANY-US200705000951

PATIENT
  Age: 78 Year
  Sex: Female

DRUGS (4)
  1. FORTEO [Suspect]
     Indication: OSTEOPOROSIS
     Dosage: UNK, UNK
     Dates: start: 20060101
  2. FORTEO [Suspect]
     Dosage: UNK D/F, UNK
  3. OXYCONTIN [Concomitant]
  4. CALCIUM CHLORIDE [Concomitant]

REACTIONS (9)
  - CRYING [None]
  - FALL [None]
  - FOOT FRACTURE [None]
  - MUSCLE SPASMS [None]
  - PAIN [None]
  - PELVIC FRACTURE [None]
  - SCIATICA [None]
  - SURGERY [None]
  - WALKING DISABILITY [None]
